FAERS Safety Report 9057615 (Version 1)
Quarter: 2013Q1

REPORT INFORMATION
  Report Type: Spontaneous
  Country: US (occurrence: US)
  Receive Date: 20130204
  Receipt Date: 20130204
  Transmission Date: 20140127
  Serious: Yes (Other)
  Sender: FDA-Public Use
  Company Number: US-PFIZER INC-2013044880

PATIENT
  Sex: Female
  Weight: 59.86 kg

DRUGS (2)
  1. LIPITOR [Suspect]
     Indication: BLOOD CHOLESTEROL INCREASED
     Dosage: 20 MG, 1X/DAY
     Route: 048
  2. PREMARIN [Suspect]
     Indication: HORMONE THERAPY
     Dosage: 0.625 MG, 1X/DAY
     Route: 048

REACTIONS (1)
  - Cardiac valve disease [Unknown]
